FAERS Safety Report 5002396-9 (Version None)
Quarter: 2006Q2

REPORT INFORMATION
  Report Type: 
  Country: None (occurrence: None)
  Receive Date: 20060512
  Receipt Date: 20060512
  Transmission Date: 20061013
  Serious: Yes (Other)
  Sender: FDA-Public Use
  Company Number: 06C149

PATIENT
  Age: 46 Year
  Sex: Female
  Weight: 57.6068 kg

DRUGS (5)
  1. CLINDAMYCIN PHOSPHATE LOTION, 1% [Suspect]
     Indication: ACNE
     Dosage: 1 TIME A DAY
     Dates: start: 20060415
  2. PHENOBARBITOL [Concomitant]
  3. TEGRETOL [Concomitant]
  4. KRSTALOSE [Concomitant]
  5. LACTULOSE [Concomitant]

REACTIONS (1)
  - PALPITATIONS [None]
